FAERS Safety Report 4321887-7 (Version None)
Quarter: 2004Q1

REPORT INFORMATION
  Report Type: 
  Country: None (occurrence: None)
  Receive Date: 20040315
  Receipt Date: 20040102
  Transmission Date: 20041129
  Serious: No
  Sender: FDA-Public Use
  Company Number: 2003185735US

PATIENT
  Age: 77 Year
  Sex: Male

DRUGS (1)
  1. BEXTRA [Suspect]
     Indication: SPINAL OSTEOARTHRITIS
     Dosage: 20 MG, BID
     Dates: start: 20031031, end: 20031107

REACTIONS (2)
  - FLUID RETENTION [None]
  - MICTURITION FREQUENCY DECREASED [None]
